FAERS Safety Report 9471146 (Version 1)
Quarter: 2013Q3

REPORT INFORMATION
  Report Type: Spontaneous
  Country: FI (occurrence: FI)
  Receive Date: 20130822
  Receipt Date: 20130822
  Transmission Date: 20140515
  Serious: Yes (Other)
  Sender: FDA-Public Use
  Company Number: PHHY2013FI087729

PATIENT
  Age: 74 Year
  Sex: Male

DRUGS (5)
  1. ZOMETA [Suspect]
     Dosage: UNK UKN, UNK
     Dates: start: 200705, end: 201112
  2. XGEVA [Suspect]
     Indication: METASTASES TO BONE
     Dosage: UNK UKN, EVERY SIX WEEKS
     Dates: start: 201112, end: 201201
  3. PAROEX [Concomitant]
     Dosage: UNK UKN, UNK
     Dates: start: 20120116
  4. ZYTIGA [Concomitant]
     Dosage: UNK UKN, UNK
     Dates: start: 201202
  5. PREDNISONE [Concomitant]
     Dosage: UNK UKN, UNK

REACTIONS (4)
  - Osteonecrosis of jaw [Not Recovered/Not Resolved]
  - Fistula [Unknown]
  - Abscess [Unknown]
  - Swelling face [Unknown]
